FAERS Safety Report 12385288 (Version 1)
Quarter: 2016Q2

REPORT INFORMATION
  Report Type: Spontaneous
  Country: None (occurrence: None)
  Receive Date: 20160518
  Receipt Date: 20160518
  Transmission Date: 20160815
  Serious: Yes (Hospitalization)
  Sender: FDA-Public Use
  Company Number: None

PATIENT
  Age: 67 Year
  Sex: Male
  Weight: 63.9 kg

DRUGS (24)
  1. FINASTERIDE. [Concomitant]
     Active Substance: FINASTERIDE
  2. CEPHALEXIN. [Concomitant]
     Active Substance: CEPHALEXIN
  3. FAMOTIDINE. [Concomitant]
     Active Substance: FAMOTIDINE
  4. DEXAMETHASONE. [Concomitant]
     Active Substance: DEXAMETHASONE
  5. DOXEPIN [Concomitant]
     Active Substance: DOXEPIN
  6. TRIAMCINOLONE ACETONIDE. [Concomitant]
     Active Substance: TRIAMCINOLONE ACETONIDE
  7. HYOSCYAMINE. [Concomitant]
     Active Substance: HYOSCYAMINE
  8. SPIRIVA [Concomitant]
     Active Substance: TIOTROPIUM BROMIDE MONOHYDRATE
  9. VITAMIN 950 COMPLEX [Concomitant]
  10. CLOBETASOL PROPIONATE. [Concomitant]
     Active Substance: CLOBETASOL PROPIONATE
  11. PALBOCICLIB [Suspect]
     Active Substance: PALBOCICLIB
     Indication: METASTASIS
     Dosage: 125 MG QD DAYS 1-21 PO
     Route: 048
     Dates: start: 20150923, end: 20160504
  12. DIPHENHYDRAMINE. [Concomitant]
     Active Substance: DIPHENHYDRAMINE
  13. SULFAMETHOXAZOLE-TRIMETHOPRIM [Concomitant]
     Active Substance: SULFAMETHOXAZOLE\TRIMETHOPRIM
  14. OXYCODONE [Concomitant]
     Active Substance: OXYCODONE
  15. CETUXIMAB [Concomitant]
     Active Substance: CETUXIMAB
     Dosage: 200MG/M2 WEEKLY IV
     Route: 042
     Dates: start: 20150923, end: 20160505
  16. ACYCLOVIR. [Concomitant]
     Active Substance: ACYCLOVIR
  17. LIDOCAINE-PRILOCAINE [Concomitant]
     Active Substance: LIDOCAINE\PRILOCAINE
  18. MUPIROCIN. [Concomitant]
     Active Substance: MUPIROCIN
  19. PREDNISONE. [Concomitant]
     Active Substance: PREDNISONE
  20. PROCHLORPERAZINE MALEATE. [Concomitant]
     Active Substance: PROCHLORPERAZINE MALEATE
  21. PALBOCICLIB [Suspect]
     Active Substance: PALBOCICLIB
     Indication: SQUAMOUS CELL CARCINOMA
     Dosage: 125 MG QD DAYS 1-21 PO
     Route: 048
     Dates: start: 20150923, end: 20160504
  22. FUROSEMIDE. [Concomitant]
     Active Substance: FUROSEMIDE
  23. POTASSIUM CHLORIDE. [Concomitant]
     Active Substance: POTASSIUM CHLORIDE
  24. LISINOPRIL. [Concomitant]
     Active Substance: LISINOPRIL

REACTIONS (12)
  - Metastases to bone [None]
  - Pyrexia [None]
  - Red blood cells urine positive [None]
  - Arthralgia [None]
  - Urine leukocyte esterase positive [None]
  - Protein urine present [None]
  - Fatigue [None]
  - Pulmonary mass [None]
  - Squamous cell carcinoma of the oral cavity [None]
  - Malignant neoplasm progression [None]
  - Pneumothorax [None]
  - Bone pain [None]

NARRATIVE: CASE EVENT DATE: 20160512
